FAERS Safety Report 14710589 (Version 2)
Quarter: 2018Q2

REPORT INFORMATION
  Report Type: Spontaneous
  Country: US (occurrence: US)
  Receive Date: 20180403
  Receipt Date: 20180414
  Transmission Date: 20180711
  Serious: Yes (Other)
  Sender: FDA-Public Use
  Company Number: US-ROCHE-1904745

PATIENT
  Age: 87 Year
  Sex: Male

DRUGS (1)
  1. ERIVEDGE [Suspect]
     Active Substance: VISMODEGIB
     Indication: BASAL CELL CARCINOMA
     Dosage: DAILY ;ONGOING: NO
     Route: 048
     Dates: start: 20161220

REACTIONS (2)
  - Hepatic failure [Unknown]
  - Hepatic function abnormal [Unknown]
